FAERS Safety Report 10270981 (Version 2)
Quarter: 2014Q3

REPORT INFORMATION
  Report Type: Spontaneous
  Country: DE (occurrence: DE)
  Receive Date: 20140701
  Receipt Date: 20140707
  Transmission Date: 20150326
  Serious: Yes (Other)
  Sender: FDA-Public Use
  Company Number: DE-GLAXOSMITHKLINE-D0084530A

PATIENT
  Age: 51 Year
  Sex: Female
  Weight: 100 kg

DRUGS (2)
  1. RELVAR ELLIPTA (FLUTICASONE FUROATE/VILANTEROL) [Suspect]
     Active Substance: FLUTICASONE FUROATE\VILANTEROL TRIFENATATE
     Indication: ASTHMA
     Route: 055
  2. L-THYROXIN [Concomitant]
     Active Substance: LEVOTHYROXINE SODIUM
     Route: 065

REACTIONS (5)
  - Subcutaneous abscess [Recovered/Resolved]
  - Pruritus [Unknown]
  - Musculoskeletal pain [Unknown]
  - Myalgia [Recovering/Resolving]
  - Pruritus genital [Unknown]
